FAERS Safety Report 20786649 (Version 1)
Quarter: 2022Q2

REPORT INFORMATION
  Report Type: Spontaneous
  Country: US (occurrence: US)
  Receive Date: 20220505
  Receipt Date: 20220505
  Transmission Date: 20220721
  Serious: Yes (Other)
  Sender: FDA-Public Use
  Company Number: US-BRISTOL-MYERS SQUIBB COMPANY-2022-025884

PATIENT
  Age: 52 Year
  Sex: Female

DRUGS (1)
  1. ONUREG [Suspect]
     Active Substance: AZACITIDINE
     Indication: Product used for unknown indication
     Route: 048
     Dates: start: 202112

REACTIONS (8)
  - Amnesia [Unknown]
  - Anxiety [Unknown]
  - Dysarthria [Unknown]
  - Depression [Unknown]
  - Myalgia [Unknown]
  - Sinus arrest [Unknown]
  - Dizziness [Unknown]
  - Dizziness [Unknown]

NARRATIVE: CASE EVENT DATE: 20211208
